FAERS Safety Report 5060963-0 (Version None)
Quarter: 2006Q2

REPORT INFORMATION
  Report Type: 
  Country: None (occurrence: None)
  Receive Date: 20060630
  Receipt Date: 20060522
  Transmission Date: 20061013
  Serious: No
  Sender: FDA-Public Use
  Company Number: US168471

PATIENT
  Age: 54 Year
  Sex: Male

DRUGS (11)
  1. SENSIPAR [Suspect]
     Indication: HYPERPARATHYROIDISM SECONDARY
     Dosage: 30 MG, 1 IN 1 DAYS, PO
     Route: 048
     Dates: start: 20060123
  2. PHENYTOIN SODIUM [Concomitant]
  3. CLONIDINE [Concomitant]
  4. VALSARTAN [Concomitant]
  5. POTASSIUM CHLORIDE [Concomitant]
  6. MINOXIDIL [Concomitant]
  7. NIFEDIPINE [Concomitant]
  8. GLYCERYL TRINITRATE [Concomitant]
  9. PHOSLO [Concomitant]
  10. VITAMIN B COMPLEX CAP [Concomitant]
  11. CEFALEXIN MONHYDRATE [Concomitant]

REACTIONS (2)
  - EAR INFECTION [None]
  - HEADACHE [None]
